FAERS Safety Report 9619343 (Version 2)
Quarter: 2013Q4

REPORT INFORMATION
  Report Type: Report from Study
  Country: JP (occurrence: JP)
  Receive Date: 20131014
  Receipt Date: 20131014
  Transmission Date: 20140711
  Serious: Yes (Hospitalization)
  Sender: FDA-Public Use
  Company Number: JP-TAKEDA-TCI2012A00363

PATIENT
  Age: 86 Year
  Sex: Female
  Weight: 50 kg

DRUGS (16)
  1. TAK-438 [Suspect]
     Dosage: 10 MG, QD
     Route: 048
     Dates: start: 20111215, end: 20120606
  2. TAK-438 [Suspect]
     Dosage: 10 MG, QD
     Dates: start: 20120607, end: 20120704
  3. CELECOX [Concomitant]
     Indication: PAIN
     Route: 048
     Dates: start: 20081028
  4. CELECOX [Concomitant]
     Indication: PAIN
  5. URITOS OD(IMIDAFENACIN) [Concomitant]
     Indication: HYPERTONIC BLADDER
     Route: 048
     Dates: start: 20110310
  6. FOSAMAC [Concomitant]
     Indication: OSTEOPOROSIS
     Route: 048
     Dates: start: 20100316
  7. ONEALFA [Concomitant]
     Indication: OSTEOPOROSIS
     Route: 048
     Dates: start: 20100713, end: 20120507
  8. DIOVAN [Concomitant]
     Indication: HYPERTENSION
     Route: 048
     Dates: start: 20110218
  9. FLUITRAN [Concomitant]
     Indication: HYPERTENSION
     Route: 048
     Dates: start: 20081024
  10. NORVASC [Concomitant]
     Indication: HYPERTENSION
     Route: 048
     Dates: start: 20081205
  11. YANYAN HOT [Concomitant]
     Indication: PAIN
     Route: 062
     Dates: start: 20111108
  12. YANYAN HOT [Concomitant]
     Indication: PAIN
  13. LOXONIN TAPE [Concomitant]
     Indication: PAIN
     Route: 062
     Dates: start: 20111108
  14. LOXONIN TAPE [Concomitant]
     Indication: PAIN
  15. CALCIUM LACTATE [Concomitant]
     Indication: OSTEOPOROSIS
     Route: 048
     Dates: start: 20110222
  16. UROLOGICALS [Concomitant]
     Indication: HYPERTONIC BLADDER
     Route: 048
     Dates: start: 20110310

REACTIONS (1)
  - Thrombophlebitis [Recovered/Resolved]
